FAERS Safety Report 4861662-8 (Version None)
Quarter: 2005Q4

REPORT INFORMATION
  Report Type: 
  Country: None (occurrence: None)
  Receive Date: 20051130
  Receipt Date: 20041222
  Transmission Date: 20060501
  Serious: Yes (Other)
  Sender: FDA-Public Use
  Company Number: 200420845BWH

PATIENT
  Age: 89 Year
  Sex: Female
  Weight: 72.5755 kg

DRUGS (4)
  1. CIPROFLOXACIN [Suspect]
     Indication: URINARY TRACT INFECTION
     Dosage: 250 MG, QD, ORAL
     Route: 048
     Dates: start: 20041005, end: 20041008
  2. CIPROFLOXACIN [Suspect]
     Indication: URINARY TRACT INFECTION
     Dosage: 250 MG, QD, ORAL
     Route: 048
     Dates: start: 20041009, end: 20041011
  3. CHEMOTHERAPY (NOS) [Concomitant]
  4. DIURETIC NOS [Concomitant]

REACTIONS (4)
  - HYPERSENSITIVITY [None]
  - OEDEMA PERIPHERAL [None]
  - RASH ERYTHEMATOUS [None]
  - SECRETION DISCHARGE [None]
